FAERS Safety Report 8105837-3 (Version None)
Quarter: 2012Q1

REPORT INFORMATION
  Report Type: 
  Country: None (occurrence: None)
  Receive Date: 20120202
  Receipt Date: 20120126
  Transmission Date: 20120608
  Serious: Yes (Life-Threatening, Hospitalization)
  Sender: FDA-Public Use
  Company Number: MX-BRISTOL-MYERS SQUIBB COMPANY-16373177

PATIENT
  Age: 55 Year
  Sex: Female
  Weight: 71 kg

DRUGS (6)
  1. PLAVIX [Suspect]
     Indication: THROMBOSIS PROPHYLAXIS
     Route: 048
     Dates: start: 20110701, end: 20111101
  2. BI-EUGLUCON [Concomitant]
     Indication: TYPE 2 DIABETES MELLITUS
     Dosage: 1DF=1 TAB
     Route: 048
     Dates: start: 20090101
  3. ASPIRIN [Concomitant]
     Route: 048
     Dates: start: 20100101
  4. IRBESARTAN [Suspect]
     Indication: HYPERTENSION
     Dosage: DOSE INCREASED TO 300MG/24HRS. 150MG:2009-12SEP11, 300MG:12SEP11-ONG.
     Route: 048
     Dates: start: 20090101
  5. AMLODIPINE [Concomitant]
     Indication: HYPERTENSION
     Dosage: 5MG TAB IS THE STRENGTH
     Route: 048
     Dates: start: 20090101
  6. CLOPIDOGREL BISULFATE [Concomitant]
     Indication: THROMBOSIS PROPHYLAXIS
     Dosage: 75MG TABS IS THE STRENGTH
     Route: 048
     Dates: start: 20100101, end: 20110701

REACTIONS (4)
  - MYOCARDIAL INFARCTION [None]
  - SKIN DISORDER [None]
  - ABDOMINAL DISCOMFORT [None]
  - HYPERTENSION [None]
